FAERS Safety Report 8823105 (Version 1)
Quarter: 2012Q4

REPORT INFORMATION
  Report Type: 
  Country: IE (occurrence: IE)
  Receive Date: 20121003
  Receipt Date: 20121003
  Transmission Date: 20130627
  Serious: Yes (Hospitalization)
  Sender: FDA-Public Use
  Company Number: IE-ROCHE-1140069

PATIENT
  Age: 19 Year
  Sex: Female

DRUGS (2)
  1. ROCEPHIN [Suspect]
     Indication: TONSILLITIS
     Route: 042
     Dates: start: 20120625
  2. PARACETAMOL [Concomitant]
     Route: 048

REACTIONS (2)
  - Wheezing [Recovered/Resolved]
  - Tachycardia [Recovered/Resolved]
